FAERS Safety Report 4321159-0 (Version None)
Quarter: 2004Q1

REPORT INFORMATION
  Report Type: 
  Country: None (occurrence: None)
  Receive Date: 20040312
  Receipt Date: 20031204
  Transmission Date: 20041129
  Serious: Yes (Hospitalization)
  Sender: FDA-Public Use
  Company Number: S03-USA-04556-01

PATIENT
  Age: 48 Year
  Sex: Male

DRUGS (3)
  1. LEXAPRO [Suspect]
     Indication: DEPRESSION
     Dosage: 10 MG QD PO
     Route: 048
     Dates: start: 20030924, end: 20031019
  2. GABAPENTIN [Concomitant]
  3. ALBUTEROL [Concomitant]

REACTIONS (1)
  - HYPONATRAEMIA [None]
